FAERS Safety Report 18477182 (Version 1)
Quarter: 2020Q4

REPORT INFORMATION
  Report Type: Spontaneous
  Country: US (occurrence: US)
  Receive Date: 20201107
  Receipt Date: 20201107
  Transmission Date: 20210114
  Serious: No
  Sender: FDA-Public Use
  Company Number: US-PERRIGO-20US006912

PATIENT
  Age: 83 Year
  Sex: Male
  Weight: 93.42 kg

DRUGS (6)
  1. ERYTHROMYCIN. [Suspect]
     Active Substance: ERYTHROMYCIN
     Indication: EYE IRRITATION
     Dosage: 1 APPLICATION, NIGHTLY
     Route: 047
     Dates: start: 20200424, end: 20200509
  2. FISH OIL W/VITAMIN D NOS [Concomitant]
     Indication: EYE DISORDER
     Dosage: UNKNOWN, UNKNOWN
     Route: 048
     Dates: start: 20200424
  3. ARTIFICIAL TEARS [Concomitant]
     Active Substance: GLYCERIN\HYPROMELLOSES\POLYETHYLENE GLYCOL 400
     Indication: EYE DISORDER
     Dosage: UNKNOWN, UNKNOWN
     Route: 047
     Dates: start: 20200424
  4. AMLODIPINE [Concomitant]
     Active Substance: AMLODIPINE BESYLATE
     Indication: BLOOD PRESSURE MANAGEMENT
     Dosage: 10 MG, UNKNOWN
     Route: 048
  5. SULFASALAZINE GF [Concomitant]
     Active Substance: SULFASALAZINE
     Indication: SPONDYLITIS
     Dosage: 500 MG, BID
     Route: 048
  6. ATENOLOL. [Concomitant]
     Active Substance: ATENOLOL
     Indication: BLOOD PRESSURE MANAGEMENT
     Dosage: UNKNOWN, UNKNOWN
     Route: 048

REACTIONS (4)
  - Eye swelling [Not Recovered/Not Resolved]
  - Ocular discomfort [Recovering/Resolving]
  - Off label use [Recovered/Resolved]
  - Ocular hyperaemia [Not Recovered/Not Resolved]

NARRATIVE: CASE EVENT DATE: 20200424
